FAERS Safety Report 16125545 (Version 1)
Quarter: 2019Q1

REPORT INFORMATION
  Report Type: Spontaneous
  Country: FR (occurrence: FR)
  Receive Date: 20190328
  Receipt Date: 20190328
  Transmission Date: 20190418
  Serious: Yes (Other)
  Sender: FDA-Public Use
  Company Number: FR-PROVELL PHARMACEUTICALS-2064802

PATIENT
  Age: 66 Year
  Sex: Female

DRUGS (1)
  1. EUTHYROX [Suspect]
     Active Substance: LEVOTHYROXINE SODIUM
     Indication: POST PROCEDURAL HYPOTHYROIDISM
     Dates: start: 201705, end: 20170827

REACTIONS (22)
  - Gastrointestinal disorder [None]
  - Depression [None]
  - Crying [None]
  - Tremor [None]
  - Fatigue [None]
  - Fall [None]
  - Pain in extremity [None]
  - Apathy [None]
  - Headache [None]
  - Suicidal ideation [None]
  - Nail injury [None]
  - Wound [None]
  - Abdominal pain upper [None]
  - Asthenia [None]
  - Alopecia [None]
  - Mobility decreased [None]
  - Mood swings [None]
  - Diarrhoea [None]
  - Impaired driving ability [None]
  - Negative thoughts [None]
  - Spinal pain [None]
  - Arthralgia [None]

NARRATIVE: CASE EVENT DATE: 201706
